FAERS Safety Report 21944332 (Version 5)
Quarter: 2023Q2

REPORT INFORMATION
  Report Type: Report from Study
  Country: US (occurrence: US)
  Receive Date: 20230202
  Receipt Date: 20230628
  Transmission Date: 20230721
  Serious: No
  Sender: FDA-Public Use
  Company Number: US-002147023-NVSC2023US018325

PATIENT
  Age: 41 Year
  Sex: Female

DRUGS (1)
  1. KESIMPTA [Suspect]
     Active Substance: OFATUMUMAB
     Indication: Multiple sclerosis
     Dosage: 20 MG, QMO
     Route: 058
     Dates: start: 20210822

REACTIONS (7)
  - Pruritus [Not Recovered/Not Resolved]
  - Hypoaesthesia [Recovering/Resolving]
  - Burning sensation [Recovering/Resolving]
  - Dyskinesia [Recovering/Resolving]
  - Upper respiratory tract infection [Recovering/Resolving]
  - Muscle spasticity [Not Recovered/Not Resolved]
  - Restless legs syndrome [Not Recovered/Not Resolved]

NARRATIVE: CASE EVENT DATE: 20230103
